FAERS Safety Report 9426364 (Version 1)
Quarter: 2013Q3

REPORT INFORMATION
  Report Type: Spontaneous
  Country: US (occurrence: None)
  Receive Date: 20130729
  Receipt Date: 20130729
  Transmission Date: 20140515
  Serious: Yes (Hospitalization)
  Sender: FDA-Public Use
  Company Number: None

PATIENT
  Age: 70 Year
  Sex: Female

DRUGS (7)
  1. ISONIAZIDE [Suspect]
     Dates: start: 20120525, end: 20120624
  2. RIFAMPIN [Concomitant]
  3. PYRAZIAMIDE [Concomitant]
  4. ETHAMBUTOL [Concomitant]
  5. DIGOXIN [Concomitant]
  6. CARDIZEM [Concomitant]
  7. AMBIEN [Concomitant]

REACTIONS (4)
  - Drug-induced liver injury [None]
  - Hip fracture [None]
  - Hepatic steatosis [None]
  - Non-small cell lung cancer [None]
